FAERS Safety Report 13335164 (Version 2)
Quarter: 2017Q2

REPORT INFORMATION
  Report Type: Other
  Country: IT (occurrence: IT)
  Receive Date: 20170314
  Receipt Date: 20170410
  Transmission Date: 20170830
  Serious: Yes (Hospitalization)
  Sender: FDA-Public Use
  Company Number: IT-MISSION PHARMACAL COMPANY-1064238

PATIENT
  Age: 83 Year
  Sex: Female

DRUGS (4)
  1. STRONTIUM RANELATE [Concomitant]
     Active Substance: STRONTIUM RANELATE
  2. BINOSTO [Suspect]
     Active Substance: ALENDRONATE SODIUM
     Indication: PROPHYLAXIS
     Route: 048
  3. CALCIUM SUPPLEMENT [Concomitant]
     Active Substance: CALCIUM
  4. VITAMIN D [Concomitant]
     Active Substance: CHOLECALCIFEROL

REACTIONS (2)
  - Periprosthetic fracture [Unknown]
  - Periprosthetic osteolysis [Unknown]
